FAERS Safety Report 15244088 (Version 1)
Quarter: 2018Q3

REPORT INFORMATION
  Report Type: Spontaneous
  Country: US (occurrence: US)
  Receive Date: 20180806
  Receipt Date: 20180806
  Transmission Date: 20181010
  Serious: Yes (Hospitalization, Other)
  Sender: FDA-Public Use
  Company Number: US-PFIZER INC-2018311179

PATIENT
  Age: 39 Year
  Sex: Female
  Weight: 72.18 kg

DRUGS (19)
  1. BEDAQUILINE [Suspect]
     Active Substance: BEDAQUILINE
     Indication: TUBERCULOSIS
     Dosage: 200 MG, UNK (TIW)
     Route: 048
     Dates: start: 20180126, end: 2018
  2. LINEZOLID. [Suspect]
     Active Substance: LINEZOLID
     Indication: TUBERCULOSIS
     Dosage: 300 MG, 1X/DAY
     Route: 048
     Dates: start: 20180126, end: 2018
  3. CYCLOSERINE. [Suspect]
     Active Substance: CYCLOSERINE
     Indication: TUBERCULOSIS
     Dosage: UNK
     Dates: start: 20180326, end: 20180603
  4. LAMIVUDINE. [Concomitant]
     Active Substance: LAMIVUDINE
     Indication: HIV INFECTION
     Dosage: UNK
     Dates: start: 20180201
  5. LINEZOLID. [Suspect]
     Active Substance: LINEZOLID
     Dosage: UNK
     Dates: start: 20180222
  6. DELAMANID [Suspect]
     Active Substance: DELAMANID
     Indication: TUBERCULOSIS
     Dosage: 200 MG, 1X/DAY
     Route: 048
     Dates: start: 20180216, end: 201802
  7. PROTIONAMIDE [Suspect]
     Active Substance: PROTIONAMIDE
     Indication: TUBERCULOSIS
     Dosage: UNK
     Dates: start: 20180117, end: 201801
  8. PYRAZINAMIDE. [Suspect]
     Active Substance: PYRAZINAMIDE
     Dosage: 1600 MG, 1X/DAY
     Route: 048
     Dates: start: 20180126, end: 2018
  9. PYRAZINAMIDE. [Suspect]
     Active Substance: PYRAZINAMIDE
     Dosage: UNK
     Dates: start: 20180222, end: 20180711
  10. CLOFAZIMINE [Suspect]
     Active Substance: CLOFAZIMINE
     Indication: TUBERCULOSIS
     Dosage: 100 MG, 1X/DAY
     Route: 048
     Dates: start: 20180126, end: 201801
  11. PROTIONAMIDE [Suspect]
     Active Substance: PROTIONAMIDE
     Dosage: 1000 MG, 1X/DAY
     Route: 048
     Dates: start: 20180126, end: 2018
  12. TENOFOVIR [Concomitant]
     Active Substance: TENOFOVIR
     Indication: HIV INFECTION
     Dosage: UNK
     Dates: start: 20180201
  13. DELAMANID [Suspect]
     Active Substance: DELAMANID
     Dosage: UNK
     Dates: start: 20180222
  14. PROTIONAMIDE [Suspect]
     Active Substance: PROTIONAMIDE
     Dosage: UNK
     Dates: start: 20180222
  15. COTRIMOXAZOLE [Concomitant]
     Active Substance: SULFAMETHOXAZOLE\TRIMETHOPRIM
     Dosage: UNK
  16. NEVIRAPINE. [Concomitant]
     Active Substance: NEVIRAPINE
     Indication: HIV INFECTION
     Dosage: UNK
     Dates: start: 20180201
  17. BEDAQUILINE [Suspect]
     Active Substance: BEDAQUILINE
     Dosage: UNK
     Dates: start: 20180222
  18. CLOFAZIMINE [Suspect]
     Active Substance: CLOFAZIMINE
     Dosage: UNK
     Dates: start: 20180222
  19. PYRAZINAMIDE. [Suspect]
     Active Substance: PYRAZINAMIDE
     Indication: TUBERCULOSIS
     Dosage: UNK
     Dates: start: 20180117, end: 201801

REACTIONS (12)
  - Aspartate aminotransferase increased [Unknown]
  - Drug dose omission [Unknown]
  - Hypothyroidism [Unknown]
  - Alanine aminotransferase increased [Unknown]
  - Psychotic disorder [Unknown]
  - Affect lability [Unknown]
  - Gamma-glutamyltransferase increased [Unknown]
  - Hallucination, auditory [Recovered/Resolved]
  - Aggression [Unknown]
  - Grandiosity [Unknown]
  - Abnormal behaviour [Recovered/Resolved]
  - Disturbance in social behaviour [Unknown]

NARRATIVE: CASE EVENT DATE: 20180603
